FAERS Safety Report 18230619 (Version 2)
Quarter: 2020Q3

REPORT INFORMATION
  Report Type: Spontaneous
  Country: NL (occurrence: NL)
  Receive Date: 20200903
  Receipt Date: 20200910
  Transmission Date: 20201103
  Serious: Yes (Other)
  Sender: FDA-Public Use
  Company Number: NL-ROCHE-2665925

PATIENT
  Sex: Male

DRUGS (1)
  1. VALIUM [Suspect]
     Active Substance: DIAZEPAM
     Indication: CYST
     Route: 065

REACTIONS (6)
  - Intentional product misuse [Unknown]
  - Heart rate decreased [Unknown]
  - Drug ineffective [Unknown]
  - Therapeutic product effect increased [Unknown]
  - Fracture [Unknown]
  - Palpitations [Unknown]
